FAERS Safety Report 6266998-4 (Version None)
Quarter: 2009Q3

REPORT INFORMATION
  Report Type: 
  Country: None (occurrence: None)
  Receive Date: 20090714
  Receipt Date: 20090703
  Transmission Date: 20100115
  Serious: Yes (Life-Threatening)
  Sender: FDA-Public Use
  Company Number: JP-SANOFI-SYNTHELABO-A01200906987

PATIENT
  Age: 77 Year
  Sex: Male

DRUGS (3)
  1. ELPLAT [Suspect]
     Indication: RECTAL CANCER
     Dosage: UNK
     Route: 041
     Dates: start: 20090617, end: 20090617
  2. FLUOROURACIL [Suspect]
     Dosage: UNK
     Route: 042
     Dates: start: 20090617, end: 20090618
  3. ISOVORIN [Suspect]
     Dosage: UNK
     Route: 042
     Dates: start: 20090617, end: 20090618

REACTIONS (1)
  - ALTERED STATE OF CONSCIOUSNESS [None]
